FAERS Safety Report 12093582 (Version 1)
Quarter: 2016Q1

REPORT INFORMATION
  Report Type: Spontaneous
  Country: GB (occurrence: None)
  Receive Date: 20160217
  Receipt Date: 20160217
  Transmission Date: 20160526
  Serious: Yes (Other)
  Sender: FDA-Public Use
  Company Number: 2016-02326

PATIENT
  Age: 61 Year
  Sex: Female
  Weight: 78 kg

DRUGS (10)
  1. DIAZEPAM. [Concomitant]
     Active Substance: DIAZEPAM
  2. SALBUTAMOL [Concomitant]
     Active Substance: ALBUTEROL
  3. GABAPENTIN (UNKNOWN) (GABAPENTIN) UNK, UNKUNK [Suspect]
     Active Substance: GABAPENTIN
     Indication: DIZZINESS
     Dosage: AT NIGHT
     Route: 048
     Dates: start: 20160120
  4. QVAR (BELCOMETASONE DIPROPIONATE) [Concomitant]
  5. FLUTIFORM (FLUTICASONE PROPIONATE, FORMOTEROL FUMARATE) [Concomitant]
  6. VITAMIN C [Concomitant]
     Active Substance: ASCORBIC ACID
  7. LORATADINE. [Concomitant]
     Active Substance: LORATADINE
  8. ASPRO (ACETYLSALICYLIC ACID) [Concomitant]
  9. CO-DYDRAMOL [Concomitant]
     Active Substance: ACETAMINOPHEN\DIHYDROCODEINE
  10. CO-CODAMOL (CODEINE PHOSPHATE, PARACETAMOL) [Concomitant]

REACTIONS (4)
  - Tension headache [None]
  - Asthenopia [None]
  - Feeling abnormal [None]
  - Fatigue [None]

NARRATIVE: CASE EVENT DATE: 20160120
